FAERS Safety Report 7078336-8 (Version None)
Quarter: 2010Q4

REPORT INFORMATION
  Report Type: 
  Country: None (occurrence: None)
  Receive Date: 20101102
  Receipt Date: 20101026
  Transmission Date: 20110411
  Serious: Yes (Hospitalization, Other)
  Sender: FDA-Public Use
  Company Number: US-BAYER-201029538NA

PATIENT
  Sex: Female

DRUGS (2)
  1. BETASERON [Suspect]
     Indication: RELAPSING-REMITTING MULTIPLE SCLEROSIS
     Route: 058
  2. UNKNOWN DRUG [Concomitant]
     Indication: HYPERTENSION
     Route: 065

REACTIONS (5)
  - ASTHENIA [None]
  - BLOOD TEST ABNORMAL [None]
  - COORDINATION ABNORMAL [None]
  - HEPATITIS [None]
  - JAUNDICE [None]
